FAERS Safety Report 13927423 (Version 1)
Quarter: 2017Q3

REPORT INFORMATION
  Report Type: Spontaneous
  Country: US (occurrence: None)
  Receive Date: 20170831
  Receipt Date: 20170831
  Transmission Date: 20171127
  Serious: Yes (Hospitalization)
  Sender: FDA-Public Use
  Company Number: None

PATIENT
  Age: 63 Year
  Sex: Male

DRUGS (1)
  1. TACROLIMUS. [Suspect]
     Active Substance: TACROLIMUS
     Indication: LIVER TRANSPLANT
     Route: 048
     Dates: start: 20170803

REACTIONS (4)
  - Renal cyst [None]
  - Blood urea increased [None]
  - Toxicity to various agents [None]
  - Blood creatinine increased [None]

NARRATIVE: CASE EVENT DATE: 20170824
